FAERS Safety Report 5271168-2 (Version None)
Quarter: 2007Q1

REPORT INFORMATION
  Report Type: 
  Country: None (occurrence: None)
  Receive Date: 20070315
  Receipt Date: 20070306
  Transmission Date: 20070707
  Serious: Yes (Other)
  Sender: FDA-Public Use
  Company Number: 2007-01096

PATIENT
  Age: 37 Year
  Sex: Male

DRUGS (4)
  1. PREDNISONE TAB [Suspect]
     Indication: ANKYLOSING SPONDYLITIS
     Dosage: 10 - 20 MG, DAILY, ORAL
     Route: 048
  2. INFLIXIMAB (INFLIXIMAB) [Suspect]
     Indication: ANKYLOSING SPONDYLITIS
     Dosage: SEE IMAGE
     Route: 042
  3. METHOTREXATE [Suspect]
     Indication: ANKYLOSING SPONDYLITIS
     Dosage: 7.5 - 10 MG, 1/WEEK, ORAL
     Route: 048
  4. NONSTEROIDAL ANTI-INFLAMMATORY DRUGS () [Suspect]
     Indication: ANKYLOSING SPONDYLITIS
     Dosage: ORAL
     Route: 048

REACTIONS (1)
  - KAPOSI'S SARCOMA [None]
